FAERS Safety Report 11055224 (Version 1)
Quarter: 2015Q2

REPORT INFORMATION
  Report Type: Spontaneous
  Country: US (occurrence: None)
  Receive Date: 20150421
  Receipt Date: 20150421
  Transmission Date: 20150821
  Serious: Yes (Disabling)
  Sender: FDA-Public Use
  Company Number: None

PATIENT
  Age: 36 Year
  Sex: Female
  Weight: 87.09 kg

DRUGS (13)
  1. AMITIZA [Suspect]
     Active Substance: LUBIPROSTONE
     Indication: CONSTIPATION
     Dosage: TAKEN BY MOUTH
     Dates: start: 20150321, end: 20150420
  2. NERVE STIMULATOR [Concomitant]
  3. TRAMADOL [Concomitant]
     Active Substance: TRAMADOL
  4. CYMBALTA [Concomitant]
     Active Substance: DULOXETINE HYDROCHLORIDE
  5. SEROQUEL [Concomitant]
     Active Substance: QUETIAPINE FUMARATE
  6. TIZANIDINE (TIZANIDINE) [Concomitant]
     Active Substance: TIZANIDINE
  7. HCTZ [Concomitant]
     Active Substance: HYDROCHLOROTHIAZIDE
  8. LYRICA [Concomitant]
     Active Substance: PREGABALIN
  9. MIDOL [Concomitant]
     Active Substance: IBUPROFEN
  10. AMITIZA [Concomitant]
     Active Substance: LUBIPROSTONE
  11. TYLENOL [Concomitant]
     Active Substance: ACETAMINOPHEN
  12. DICLOFENAC [Concomitant]
     Active Substance: DICLOFENAC
  13. SIMVASTATIN. [Concomitant]
     Active Substance: SIMVASTATIN

REACTIONS (7)
  - Abdominal distension [None]
  - Back pain [None]
  - Nausea [None]
  - Diarrhoea [None]
  - Flatulence [None]
  - Abdominal pain upper [None]
  - Peripheral swelling [None]

NARRATIVE: CASE EVENT DATE: 20150419
